FAERS Safety Report 8112180-5 (Version None)
Quarter: 2012Q1

REPORT INFORMATION
  Report Type: 
  Country: None (occurrence: None)
  Receive Date: 20120203
  Receipt Date: 20120127
  Transmission Date: 20120608
  Serious: Yes (Hospitalization, Other)
  Sender: FDA-Public Use
  Company Number: DE-PFIZER INC-2010009469

PATIENT
  Age: 82 Year
  Sex: Female
  Weight: 68 kg

DRUGS (11)
  1. BISOPROLOL FUMARATE [Interacting]
     Indication: HYPERTENSION
     Dosage: 5 MG, 2X/DAY
     Route: 048
     Dates: start: 20080601
  2. VALORON [Interacting]
     Indication: PAIN
     Dosage: 1 DF, (1DF = 100MG TILIDINE HCL/ 8 MG NALOXONE HCL) 1 X INTERVAL NOT SPECIFIED
     Route: 048
     Dates: start: 20090701
  3. RAMIPRIL [Suspect]
     Indication: HYPERTENSION
     Dosage: 5 MG, 1X/DAY
     Route: 048
  4. NOVALGIN [Interacting]
     Indication: PAIN
     Dosage: 750 MG, 3 X INTERVAL NOT SPECIFIED
     Route: 048
  5. ALLOPURINOL [Concomitant]
     Indication: HYPERURICAEMIA
     Dosage: 300 MG, 1X/DAY
     Route: 048
     Dates: start: 20080601, end: 20090712
  6. XIPAMIDE [Suspect]
     Indication: HYPERTENSION
     Dosage: 20 MG, 1X/DAY
     Route: 048
     Dates: start: 20080601
  7. METFORMIN [Concomitant]
     Indication: TYPE 2 DIABETES MELLITUS
     Dosage: 500 MG, 1X/DAY
     Route: 048
     Dates: start: 20080601, end: 20090712
  8. ASPIRIN [Interacting]
     Indication: CEREBROVASCULAR ACCIDENT
     Dosage: 100 MG,
     Route: 048
  9. TORSEMIDE [Suspect]
     Indication: HYPERTENSION
     Dosage: 10 MG, 1X/DAY
     Route: 048
     Dates: start: 20080601, end: 20090712
  10. MOXONIDINE [Interacting]
     Indication: HYPERTENSION
     Dosage: 0.3 MG, 2 X INTERVAL NOT SPECIFIED
     Route: 048
     Dates: start: 20080601
  11. PANTOPRAZOLE [Concomitant]
     Indication: PROPHYLAXIS AGAINST GASTROINTESTINAL ULCER
     Dosage: 40 MG, 1X/DAY
     Route: 048

REACTIONS (10)
  - ACUTE PRERENAL FAILURE [None]
  - HYPOKALAEMIA [None]
  - ALKALOSIS [None]
  - DRUG INTERACTION [None]
  - DILATATION VENTRICULAR [None]
  - VOMITING [None]
  - NAUSEA [None]
  - DEHYDRATION [None]
  - HYPONATRAEMIA [None]
  - CONSTIPATION [None]
